FAERS Safety Report 12101691 (Version 1)
Quarter: 2016Q1

REPORT INFORMATION
  Report Type: Spontaneous
  Country: SE (occurrence: SE)
  Receive Date: 20160222
  Receipt Date: 20160222
  Transmission Date: 20160526
  Serious: Yes (Other)
  Sender: FDA-Public Use
  Company Number: SE-009507513-1602SWE008228

PATIENT
  Sex: Female
  Weight: 5.53 kg

DRUGS (1)
  1. NEXPLANON [Suspect]
     Active Substance: ETONOGESTREL
     Indication: CONTRACEPTION
     Dosage: UNK
     Route: 064

REACTIONS (3)
  - Neonatal asphyxia [Unknown]
  - Foetal monitoring abnormal [Unknown]
  - Foetal exposure during pregnancy [Recovered/Resolved]
